FAERS Safety Report 14417840 (Version 2)
Quarter: 2018Q3

REPORT INFORMATION
  Report Type: Spontaneous
  Country: US (occurrence: US)
  Receive Date: 20180122
  Receipt Date: 20180713
  Transmission Date: 20181010
  Serious: No
  Sender: FDA-Public Use
  Company Number: US-INTERCEPT-PMOCA2017001036

PATIENT

DRUGS (2)
  1. OCALIVA [Suspect]
     Active Substance: OBETICHOLIC ACID
     Indication: PRIMARY BILIARY CHOLANGITIS
     Dosage: 10 MG, QD
     Route: 048
     Dates: start: 20160715, end: 20170929
  2. OCALIVA [Suspect]
     Active Substance: OBETICHOLIC ACID
     Dosage: 5 MG, QD
     Route: 048
     Dates: end: 20180206

REACTIONS (5)
  - Dizziness [Unknown]
  - Blister [Unknown]
  - Rash maculo-papular [Unknown]
  - Immunosuppressant drug level increased [Unknown]
  - Pruritus [Unknown]

NARRATIVE: CASE EVENT DATE: 201709
